FAERS Safety Report 5261361-7 (Version None)
Quarter: 2007Q1

REPORT INFORMATION
  Report Type: 
  Country: None (occurrence: None)
  Receive Date: 20070307
  Receipt Date: 20070220
  Transmission Date: 20070707
  Serious: Yes (Hospitalization)
  Sender: FDA-Public Use
  Company Number: 2007PV030364

PATIENT
  Age: 66 Year
  Sex: Female
  Weight: 58.0604 kg

DRUGS (15)
  1. BYETTA [Suspect]
     Indication: DIABETES MELLITUS NON-INSULIN-DEPENDENT
     Dosage: SEE IMAGE
     Route: 058
     Dates: start: 20050901, end: 20061001
  2. BYETTA [Suspect]
     Indication: DIABETES MELLITUS NON-INSULIN-DEPENDENT
     Dosage: SEE IMAGE
     Route: 058
     Dates: start: 20061201
  3. LOPID [Concomitant]
  4. METFORMIN HCL [Concomitant]
  5. AMARYL [Concomitant]
  6. DIOVAN [Concomitant]
  7. VERAPAMIL [Concomitant]
  8. NEURONTIN [Concomitant]
  9. LASIX [Concomitant]
  10. POTASSIUM ACETATE [Concomitant]
  11. ACTONEL [Concomitant]
  12. ZYRTEC [Concomitant]
  13. FLONASE [Concomitant]
  14. CELEBREX [Concomitant]
  15. PROTONIX [Concomitant]

REACTIONS (5)
  - ARTHROPOD BITE [None]
  - BENIGN PANCREATIC NEOPLASM [None]
  - PANCREATITIS [None]
  - PHARMACEUTICAL PRODUCT COMPLAINT [None]
  - RENAL ARTERY OCCLUSION [None]
